FAERS Safety Report 15475907 (Version 2)
Quarter: 2018Q4

REPORT INFORMATION
  Report Type: Spontaneous
  Country: HU (occurrence: HU)
  Receive Date: 20181009
  Receipt Date: 20181011
  Transmission Date: 20190205
  Serious: Yes (Other)
  Sender: FDA-Public Use
  Company Number: PHHY2018HU116575

PATIENT
  Age: 74 Year
  Sex: Female

DRUGS (1)
  1. ROSUVASTATIN. [Suspect]
     Active Substance: ROSUVASTATIN
     Indication: HYPERLIPIDAEMIA
     Route: 065

REACTIONS (6)
  - Blood glucose increased [Unknown]
  - Blood cholesterol increased [Not Recovered/Not Resolved]
  - Hyperlipidaemia [Unknown]
  - Vertebrobasilar insufficiency [Unknown]
  - Cerebral infarction [Unknown]
  - Hypertension [Unknown]
